FAERS Safety Report 8485662-4 (Version None)
Quarter: 2012Q3

REPORT INFORMATION
  Report Type: 
  Country: None (occurrence: None)
  Receive Date: 20120703
  Receipt Date: 20120629
  Transmission Date: 20120928
  Serious: Yes (Life-Threatening, Hospitalization, Other)
  Sender: FDA-Public Use
  Company Number: PL-JNJFOC-20100210816

PATIENT
  Age: 17 Year
  Sex: Female

DRUGS (4)
  1. METOPROLOL TARTRATE [Suspect]
     Indication: SUICIDE ATTEMPT
     Route: 048
  2. VERAPAMIL HCL [Suspect]
     Indication: SUICIDE ATTEMPT
     Route: 048
  3. IBUPROFEN [Suspect]
     Indication: PRODUCT USED FOR UNKNOWN INDICATION
     Route: 048
  4. AMLODIPINE BESYLATE [Suspect]
     Indication: SUICIDE ATTEMPT
     Route: 048

REACTIONS (5)
  - SUICIDE ATTEMPT [None]
  - OVERDOSE [None]
  - COMA [None]
  - TOXICITY TO VARIOUS AGENTS [None]
  - CARDIOGENIC SHOCK [None]
